FAERS Safety Report 13007821 (Version 2)
Quarter: 2017Q1

REPORT INFORMATION
  Report Type: Spontaneous
  Country: GB (occurrence: GB)
  Receive Date: 20161207
  Receipt Date: 20170112
  Transmission Date: 20170428
  Serious: Yes (Death, Life-Threatening)
  Sender: FDA-Public Use
  Company Number: GB-INTERNATIONAL MEDICATION SYSTEMS, LIMITED-1060550

PATIENT
  Age: 68 Year
  Sex: Female
  Weight: 93 kg

DRUGS (12)
  1. ATRACURIUM BESYLATE. [Suspect]
     Active Substance: ATRACURIUM BESYLATE
     Route: 042
     Dates: start: 20160929, end: 20160929
  2. LISINOPRIL. [Concomitant]
     Active Substance: LISINOPRIL
  3. PARACETAMOL [Concomitant]
     Active Substance: ACETAMINOPHEN
  4. TEICOPLANIN [Suspect]
     Active Substance: TEICOPLANIN
     Route: 042
     Dates: start: 20160929, end: 20160929
  5. PROPOFOL. [Suspect]
     Active Substance: PROPOFOL
     Dates: start: 20160929, end: 20160929
  6. CLOPIDOGREL [Concomitant]
     Active Substance: CLOPIDOGREL BISULFATE
  7. MORPHINE [Suspect]
     Active Substance: MORPHINE
     Indication: PERIOPERATIVE ANALGESIA
     Route: 042
     Dates: start: 20160929, end: 20160929
  8. GABAPENTIN. [Concomitant]
     Active Substance: GABAPENTIN
  9. METFORMIN [Concomitant]
     Active Substance: METFORMIN HYDROCHLORIDE
  10. PHENYLEPHRINE [Suspect]
     Active Substance: PHENYLEPHRINE\PHENYLEPHRINE HYDROCHLORIDE
     Route: 042
     Dates: start: 20160929, end: 20160929
  11. CEFUROXIME. [Suspect]
     Active Substance: CEFUROXIME
     Route: 042
     Dates: start: 20160929, end: 20160929
  12. CODEINE SULFATE. [Concomitant]
     Active Substance: CODEINE SULFATE

REACTIONS (5)
  - Cardiac arrest [Fatal]
  - Hypotension [Not Recovered/Not Resolved]
  - Death [Fatal]
  - Acute myocardial infarction [Not Recovered/Not Resolved]
  - Arteriospasm coronary [Not Recovered/Not Resolved]
